FAERS Safety Report 20638911 (Version 4)
Quarter: 2022Q4

REPORT INFORMATION
  Report Type: Report from Study
  Country: IE (occurrence: IE)
  Receive Date: 20220325
  Receipt Date: 20221018
  Transmission Date: 20230112
  Serious: Yes (Hospitalization, Other)
  Sender: FDA-Public Use
  Company Number: IE-CHILTERN-IE-2019-001225

PATIENT
  Age: 38 Year
  Sex: Female
  Weight: 56 kg

DRUGS (40)
  1. TISOTUMAB VEDOTIN [Suspect]
     Active Substance: TISOTUMAB VEDOTIN
     Indication: Cervix cancer metastatic
     Dosage: 2 MILLIGRAM/KILOGRAM, 1Q3W
     Route: 041
     Dates: start: 20191220, end: 20200116
  2. PEMBROLIZUMAB [Suspect]
     Active Substance: PEMBROLIZUMAB
     Indication: Cervix cancer metastatic
     Dosage: 200 MILLIGRAM, 1Q3W
     Route: 041
     Dates: start: 20191220, end: 20200116
  3. IMODIUM [Concomitant]
     Active Substance: LOPERAMIDE HYDROCHLORIDE
     Indication: Prophylaxis
     Dosage: 1 UNK, PRN
     Route: 048
     Dates: start: 20180801
  4. CYCLIZINE [Concomitant]
     Active Substance: CYCLIZINE
     Indication: Nausea
     Dosage: 50 MILLIGRAM, PRN
     Route: 048
     Dates: start: 20191210, end: 20191228
  5. CYCLIZINE [Concomitant]
     Active Substance: CYCLIZINE
     Dosage: 50 MILLIGRAM, TID
     Route: 048
     Dates: start: 20200107
  6. CYCLIZINE [Concomitant]
     Active Substance: CYCLIZINE
     Dosage: 150 MILLIGRAM, OVER 24 HOURS
     Route: 058
     Dates: start: 20200119, end: 20200206
  7. TRAMADOL [Concomitant]
     Active Substance: TRAMADOL
     Indication: Pain
     Dosage: 100 MILLIGRAM, TID
     Route: 048
     Dates: start: 20191224, end: 20191227
  8. ACETAMINOPHEN [Concomitant]
     Active Substance: ACETAMINOPHEN
     Indication: Prophylaxis
     Dosage: 1 GRAM, PRN
     Route: 048
     Dates: start: 20191210
  9. CIMETIDINE [Concomitant]
     Active Substance: CIMETIDINE
     Indication: Gastrooesophageal reflux disease
     Dosage: 15 MILLILITER, TID
     Route: 048
     Dates: start: 20191222, end: 20191225
  10. REFRESH CELLUVISC [Concomitant]
     Active Substance: CARBOXYMETHYLCELLULOSE SODIUM
     Indication: Eye lubrication therapy
     Dosage: 1 APPLICATION, QID, BOTH EYES
     Route: 047
     Dates: start: 20191220
  11. ENOXAPARIN [Concomitant]
     Active Substance: ENOXAPARIN
     Indication: Thrombosis prophylaxis
     Dosage: 40 MILLIGRAM, QD
     Route: 058
     Dates: start: 20191221, end: 20191226
  12. ENOXAPARIN [Concomitant]
     Active Substance: ENOXAPARIN
     Indication: Prophylaxis
     Dosage: 40 MILLIGRAM
     Route: 058
     Dates: start: 20200106, end: 20200121
  13. METOCLOPRAMIDE HYDROCHLORIDE [Concomitant]
     Active Substance: METOCLOPRAMIDE HYDROCHLORIDE
     Indication: Nausea
     Dosage: 10 MILLIGRAM, TID
     Route: 042
     Dates: start: 20191221, end: 20191222
  14. OXYCODONE HYDROCHLORIDE [Concomitant]
     Active Substance: OXYCODONE HYDROCHLORIDE
     Indication: Pain
     Dosage: 10 MILLIGRAM, QD
     Route: 048
     Dates: start: 20191227, end: 20200120
  15. AMOXICILLIN\CLAVULANATE POTASSIUM [Concomitant]
     Active Substance: AMOXICILLIN\CLAVULANATE POTASSIUM
     Indication: Skin infection
     Dosage: 625 MILLIGRAM, TID
     Route: 048
     Dates: start: 20200102, end: 20200106
  16. BUTYLSCOPOLAMINE BROMIDE [Concomitant]
     Active Substance: BUTYLSCOPOLAMINE BROMIDE
     Indication: Muscle spasms
     Dosage: 10 MILLIGRAM, TID
     Route: 048
     Dates: start: 20200106
  17. BUTYLSCOPOLAMINE BROMIDE [Concomitant]
     Active Substance: BUTYLSCOPOLAMINE BROMIDE
     Dosage: 40 MILLIGRAM, OVER 24 HOURS
     Route: 058
     Dates: start: 20200118, end: 20200203
  18. PIPERACILLIN SODIUM\TAZOBACTAM SODIUM [Concomitant]
     Active Substance: PIPERACILLIN SODIUM\TAZOBACTAM SODIUM
     Indication: Skin infection
     Dosage: 4.5 MILLIGRAM, TID
     Route: 042
     Dates: start: 20200107, end: 20200113
  19. PIPERACILLIN SODIUM\TAZOBACTAM SODIUM [Concomitant]
     Active Substance: PIPERACILLIN SODIUM\TAZOBACTAM SODIUM
     Indication: Urinary tract infection
     Dosage: 4.5 MILLIGRAM, TID
     Route: 042
     Dates: start: 20200128, end: 20200206
  20. PIPERACILLIN SODIUM\TAZOBACTAM SODIUM [Concomitant]
     Active Substance: PIPERACILLIN SODIUM\TAZOBACTAM SODIUM
     Indication: Infection
     Dosage: 4.5 MILLIGRAM, TID
     Route: 042
     Dates: start: 20200212
  21. SODIUM CHLORIDE [Concomitant]
     Active Substance: SODIUM CHLORIDE
     Indication: Prophylaxis against dehydration
     Dosage: 1000 MILLILITER, Q8H
     Route: 042
     Dates: start: 20200118
  22. OXYCODONE [Concomitant]
     Active Substance: OXYCODONE
     Indication: Pain
     Dosage: 2.5 MILLIGRAM, OVER 24 HOURS
     Route: 058
     Dates: start: 20200119, end: 20200120
  23. LEVOMEPROMAZINE [Concomitant]
     Active Substance: LEVOMEPROMAZINE
     Indication: Antiemetic supportive care
     Dosage: 3.125 MILLIGRAM, Q8H
     Route: 058
     Dates: start: 20200119, end: 20200125
  24. ZOPICLONE [Concomitant]
     Active Substance: ZOPICLONE
     Indication: Sedation
     Dosage: 7.5 MILLIGRAM, NOCTE (AT NIGHT)
     Route: 048
     Dates: start: 20200119
  25. OCTREOTIDE [Concomitant]
     Active Substance: OCTREOTIDE
     Indication: Ileostomy
     Dosage: 300 MICROGRAM, QD, OVER 24 HOURS
     Route: 058
     Dates: start: 20200120, end: 20200203
  26. MIDAZOLAM [Concomitant]
     Active Substance: MIDAZOLAM
     Indication: Anxiety
     Dosage: 2.5 MILLIGRAM, OVER 24 HOURS
     Route: 058
     Dates: start: 20200120
  27. PABRINEX [ASCORBIC ACID;BENZYL ALCOHOL;NICOTINAMIDE;PYRIDOXINE HYDROCH [Concomitant]
     Indication: Prophylaxis
     Dosage: 1+2, OVER 24 HOURS
     Route: 058
     Dates: start: 20200120, end: 20200125
  28. LEUCOVORIN [Concomitant]
     Active Substance: LEUCOVORIN
     Indication: Prophylaxis
     Dosage: 15 MILLIGRAM, QD
     Route: 042
     Dates: start: 20200120, end: 20200121
  29. HYDROXOCOBALAMIN [Concomitant]
     Active Substance: HYDROXOCOBALAMIN
     Indication: Prophylaxis
     Dosage: 1000 MILLIGRAM, QD
     Route: 042
     Dates: start: 20200120, end: 20200121
  30. ALPRAZOLAM [Concomitant]
     Active Substance: ALPRAZOLAM
     Indication: Anxiety
     Dosage: 250 MICROGRAM, QD, STAT
     Route: 048
     Dates: start: 20200121, end: 20200121
  31. ALPRAZOLAM [Concomitant]
     Active Substance: ALPRAZOLAM
     Dosage: 500 MICROGRAM, QD
     Route: 048
     Dates: start: 20200128
  32. METRONIDAZOLE [Concomitant]
     Active Substance: METRONIDAZOLE
     Indication: Skin infection
     Dosage: 1 APPLICATION, BID
     Route: 061
     Dates: start: 20200101
  33. MORPHINE [Concomitant]
     Active Substance: MORPHINE
     Indication: Pain
     Dosage: 40 MILLIGRAM, OVER 24 HOURS
     Route: 058
     Dates: start: 20200120
  34. DEXAMETHASONE [Concomitant]
     Active Substance: DEXAMETHASONE
     Indication: Inflammation
     Dosage: 0.5 MILLIGRAM, OVER 24 HOURS
     Route: 058
     Dates: start: 20200128
  35. MIRABEGRON [Concomitant]
     Active Substance: MIRABEGRON
     Indication: Hypertonic bladder
     Dosage: 50 MILLIGRAM, TID
     Route: 048
     Dates: start: 20200123
  36. BIOXTRA [Concomitant]
     Indication: Dry mouth
     Dosage: 1 APPLICATION, PRN
     Route: 048
     Dates: start: 20200128
  37. BUPIVACAINE HYDROCHLORIDE [Concomitant]
     Active Substance: BUPIVACAINE HYDROCHLORIDE
     Indication: Pain
     Dosage: 15 ML/HR, CONTINUOUS
     Route: 008
     Dates: start: 20200130, end: 20200204
  38. FENTANYL [Concomitant]
     Active Substance: FENTANYL
     Indication: Pain
     Dosage: 31 MICROGRAM, OVER 72 HOURS
     Route: 061
     Dates: start: 20200212
  39. ORAMORPH SR SUSTAINED RELEASE [Concomitant]
     Active Substance: MORPHINE SULFATE
     Indication: Pain
     Dosage: 20 MILLIGRAM, PRN
     Route: 048
     Dates: start: 20200212
  40. KCL [Concomitant]
     Active Substance: POTASSIUM CHLORIDE
     Indication: Prophylaxis
     Dosage: 10 MILLILITER, TID
     Route: 048
     Dates: start: 20200113

REACTIONS (6)
  - Cystitis haemorrhagic [Recovered/Resolved]
  - Haematuria [Recovered/Resolved]
  - Hypokalaemia [Recovered/Resolved]
  - Cystitis radiation [Recovered/Resolved]
  - Hypomagnesaemia [Recovered/Resolved]
  - Gastritis [Recovered/Resolved]

NARRATIVE: CASE EVENT DATE: 20191220
